FAERS Safety Report 14498756 (Version 1)
Quarter: 2018Q1

REPORT INFORMATION
  Report Type: Spontaneous
  Country: GR (occurrence: GR)
  Receive Date: 20180207
  Receipt Date: 20180207
  Transmission Date: 20180509
  Serious: Yes (Other)
  Sender: FDA-Public Use
  Company Number: GR-ALLERGAN-1805991US

PATIENT
  Age: 81 Year
  Sex: Female

DRUGS (5)
  1. VANCOMYCIN HYDROCHLORIDE. [Suspect]
     Active Substance: VANCOMYCIN HYDROCHLORIDE
     Indication: ENDOPHTHALMITIS
     Dosage: 0.1 ML (OF 10 MG/ML)
     Route: 065
  2. DEX UNK [Suspect]
     Active Substance: UNSPECIFIED INGREDIENT
     Indication: ENDOPHTHALMITIS
     Dosage: 0.7 MG, SINGLE
     Route: 031
  3. MOXIFLOXACIN. [Suspect]
     Active Substance: MOXIFLOXACIN
     Indication: ENDOPHTHALMITIS
     Route: 065
  4. AMIKACIN [Suspect]
     Active Substance: AMIKACIN
     Indication: ENDOPHTHALMITIS
     Dosage: 0.1 ML (OF 4 MG/ML)
     Route: 065
  5. XARELTO [Concomitant]
     Active Substance: RIVAROXABAN
     Indication: THROMBOSIS
     Route: 065

REACTIONS (5)
  - Retinal haemorrhage [Unknown]
  - Maculopathy [Unknown]
  - Retinal artery occlusion [Unknown]
  - Retinal ischaemia [Unknown]
  - Off label use [Unknown]
